FAERS Safety Report 8186747-2 (Version None)
Quarter: 2012Q1

REPORT INFORMATION
  Report Type: 
  Country: None (occurrence: None)
  Receive Date: 20120306
  Receipt Date: 20120306
  Transmission Date: 20120608
  Serious: No
  Sender: FDA-Public Use
  Company Number: None

PATIENT
  Sex: Female

DRUGS (1)
  1. PRAMIPEXOLE DIHYDROCHLORIDE [Suspect]
     Indication: HYPERTONIC BLADDER
     Dosage: 3
     Route: 048
     Dates: start: 20120220, end: 20120220

REACTIONS (4)
  - DIZZINESS [None]
  - PRODUCT SUBSTITUTION ISSUE [None]
  - HYPERSOMNIA [None]
  - SEDATION [None]
